FAERS Safety Report 6885928-5 (Version None)
Quarter: 2010Q3

REPORT INFORMATION
  Report Type: 
  Country: None (occurrence: None)
  Receive Date: 20100729
  Receipt Date: 20080627
  Transmission Date: 20110219
  Serious: No
  Sender: FDA-Public Use
  Company Number: US-PFIZER INC-2008054993

PATIENT
  Sex: Female
  Weight: 70.5 kg

DRUGS (2)
  1. CELEBREX [Suspect]
     Dates: start: 20080627, end: 20080627
  2. GALENIC /BENAZEPRIL/HYDROCHLOROTHIAZIDE/ [Concomitant]

REACTIONS (2)
  - PRURITUS [None]
  - RASH [None]
